FAERS Safety Report 11934485 (Version 2)
Quarter: 2016Q1

REPORT INFORMATION
  Report Type: Spontaneous
  Country: US (occurrence: US)
  Receive Date: 20160121
  Receipt Date: 20160215
  Transmission Date: 20160526
  Serious: No
  Sender: FDA-Public Use
  Company Number: US-ROXANE LABORATORIES, INC.-2016-RO-00092RO

PATIENT
  Sex: Female

DRUGS (2)
  1. QUETIAPINE FUMARATE 50 MG, 100 MG, 200 MG, 300 MG, AND 400 MG [Suspect]
     Active Substance: QUETIAPINE FUMARATE
     Indication: MOOD SWINGS
     Dosage: 100 MG
     Route: 048
     Dates: start: 201506
  2. LORAZEPAM. [Concomitant]
     Active Substance: LORAZEPAM
     Route: 065

REACTIONS (5)
  - Product quality issue [Unknown]
  - Dizziness [Unknown]
  - Somnolence [Unknown]
  - Vomiting [Recovered/Resolved]
  - Nausea [Recovered/Resolved]
